FAERS Safety Report 19701274 (Version 2)
Quarter: 2021Q4

REPORT INFORMATION
  Report Type: Report from Study
  Country: BG (occurrence: BG)
  Receive Date: 20210814
  Receipt Date: 20211130
  Transmission Date: 20220303
  Serious: Yes (Hospitalization)
  Sender: FDA-Public Use
  Company Number: BG-NOVARTISPH-NVSC2021BG170155

PATIENT
  Age: 46 Year
  Sex: Female
  Weight: 50.5 kg

DRUGS (8)
  1. ALPELISIB [Suspect]
     Active Substance: ALPELISIB
     Indication: Triple negative breast cancer
     Dosage: CODE NOT BROKEN
     Route: 048
     Dates: start: 20210723, end: 20210726
  2. INVESTIGATIONAL PRODUCT [Suspect]
     Active Substance: INVESTIGATIONAL PRODUCT
     Indication: Triple negative breast cancer
     Dosage: CODE NOT BROKEN
     Route: 048
     Dates: start: 20210723, end: 20210726
  3. PLACEBO [Suspect]
     Active Substance: UNSPECIFIED INGREDIENT
     Indication: Triple negative breast cancer
     Dosage: CODE NOT BROKEN
     Route: 048
     Dates: start: 20210723, end: 20210726
  4. PACLITAXEL [Suspect]
     Active Substance: PACLITAXEL
     Indication: Triple negative breast cancer
     Dosage: 100 MG, ONCE
     Route: 042
     Dates: start: 20210723
  5. METOCLOPRAMIDE HYDROCHLORIDE [Concomitant]
     Active Substance: METOCLOPRAMIDE HYDROCHLORIDE
     Indication: Vomiting
     Dosage: UNK
     Route: 065
     Dates: start: 20210723, end: 20210726
  6. METOCLOPRAMIDE HYDROCHLORIDE [Concomitant]
     Active Substance: METOCLOPRAMIDE HYDROCHLORIDE
     Indication: Nausea
     Dosage: UNK
     Route: 065
     Dates: start: 20210727, end: 20210729
  7. VITAMIN C [Concomitant]
     Active Substance: ASCORBIC ACID
     Indication: Vomiting
     Dosage: UNK
     Route: 065
     Dates: start: 20210727, end: 20210729
  8. VITAMIN B-COMPLEX [Concomitant]
     Active Substance: DEXPANTHENOL\NIACINAMIDE\PYRIDOXINE HYDROCHLORIDE\RIBOFLAVIN 5^-PHOSPHATE SODIUM\THIAMINE HYDROCHLOR
     Indication: Vomiting
     Dosage: UNK
     Route: 065
     Dates: start: 20210727, end: 20210729

REACTIONS (1)
  - Dehydration [Recovered/Resolved]

NARRATIVE: CASE EVENT DATE: 20210727
